FAERS Safety Report 11527671 (Version 1)
Quarter: 2015Q3

REPORT INFORMATION
  Report Type: Spontaneous
  Country: US (occurrence: US)
  Receive Date: 20150903
  Receipt Date: 20150903
  Transmission Date: 20151125
  Serious: No
  Sender: FDA-Public Use
  Company Number: US-ELI_LILLY_AND_COMPANY-US200905001308

PATIENT
  Age: 70 Year
  Sex: Female

DRUGS (4)
  1. APIDRA [Concomitant]
     Active Substance: INSULIN GLULISINE
  2. HUMALOG [Suspect]
     Active Substance: INSULIN LISPRO
     Dosage: UNK, 3/D
     Dates: start: 200811
  3. LANTUS [Concomitant]
     Active Substance: INSULIN GLARGINE
     Dosage: UNK, 2/D
  4. LEVEMIR [Concomitant]
     Active Substance: INSULIN DETEMIR

REACTIONS (14)
  - Injection site rash [Recovered/Resolved]
  - Fluid retention [Recovered/Resolved]
  - Arthritis [Unknown]
  - Hypersensitivity [Unknown]
  - Stress [Not Recovered/Not Resolved]
  - Bursitis [Not Recovered/Not Resolved]
  - Myalgia [Not Recovered/Not Resolved]
  - Chondrocalcinosis pyrophosphate [Recovered/Resolved]
  - Blood glucose increased [Recovered/Resolved]
  - Platelet count increased [Unknown]
  - Pain [Unknown]
  - Urticaria [Recovered/Resolved]
  - Injection site pain [Recovered/Resolved]
  - Joint warmth [Unknown]

NARRATIVE: CASE EVENT DATE: 200812
